FAERS Safety Report 6785212-4 (Version None)
Quarter: 2010Q2

REPORT INFORMATION
  Report Type: 
  Country: None (occurrence: None)
  Receive Date: 20100622
  Receipt Date: 20100622
  Transmission Date: 20101027
  Serious: Yes (Hospitalization)
  Sender: FDA-Public Use
  Company Number: None

PATIENT
  Age: 56 Year
  Sex: Male
  Weight: 91 kg

DRUGS (8)
  1. LITHIUM CITRATE [Suspect]
     Indication: BIPOLAR DISORDER
     Dosage: 900MG DAILY PO (CHRONIC)
     Route: 048
  2. SEROQUEL [Concomitant]
  3. HCTZ [Concomitant]
  4. ENALAPRIL MALEATE [Concomitant]
  5. SIMVASTATIN [Concomitant]
  6. PROPRANOLOL [Concomitant]
  7. IBUPROFEN [Concomitant]
  8. AMBIEN [Concomitant]

REACTIONS (6)
  - ANTIPSYCHOTIC DRUG LEVEL ABOVE THERAPEUTIC [None]
  - DIARRHOEA [None]
  - NAUSEA [None]
  - RENAL FAILURE ACUTE [None]
  - TREMOR [None]
  - VOMITING [None]
